FAERS Safety Report 4973917-7 (Version None)
Quarter: 2006Q2

REPORT INFORMATION
  Report Type: 
  Country: None (occurrence: None)
  Receive Date: 20060410
  Receipt Date: 20060330
  Transmission Date: 20061013
  Serious: Yes (Life-Threatening, Hospitalization)
  Sender: FDA-Public Use
  Company Number: 2006047086

PATIENT
  Sex: Male

DRUGS (7)
  1. SERTRALINE [Suspect]
     Indication: DEPRESSION
     Dosage: 100 MG (100 MG, 1 IN 1 D)
  2. METHADONE HCL [Suspect]
     Indication: PAIN
     Dosage: 30 MG (10 MG, EVERY 8 HOURS)
  3. CELECOXIB [Concomitant]
  4. LEVOTHYROXINE SODIUM [Concomitant]
  5. MEGESTROL [Concomitant]
  6. PROMETHAZINE [Concomitant]
  7. LAXATIVES [Concomitant]

REACTIONS (20)
  - ABDOMINAL PAIN [None]
  - ADENOCARCINOMA [None]
  - BACK PAIN [None]
  - COGNITIVE DISORDER [None]
  - COMA [None]
  - COMPRESSION FRACTURE [None]
  - DRUG INTERACTION [None]
  - DRUG LEVEL INCREASED [None]
  - DRUG TOXICITY [None]
  - DRUG WITHDRAWAL SYNDROME [None]
  - FAILURE TO THRIVE [None]
  - GASTROOESOPHAGEAL CANCER [None]
  - HALLUCINATION [None]
  - LABORATORY TEST INTERFERENCE [None]
  - MALNUTRITION [None]
  - MYOCLONUS [None]
  - OSTEOPOROSIS [None]
  - PAIN [None]
  - RESPIRATORY DEPRESSION [None]
  - SCHIZOPHRENIA, PARANOID TYPE [None]
